FAERS Safety Report 9210911 (Version 1)
Quarter: 2013Q2

REPORT INFORMATION
  Report Type: Spontaneous
  Country: SG (occurrence: SG)
  Receive Date: 20130404
  Receipt Date: 20130404
  Transmission Date: 20140414
  Serious: Yes (Other)
  Sender: FDA-Public Use
  Company Number: SG-PFIZER INC-2013107510

PATIENT
  Sex: Male

DRUGS (3)
  1. GABAPENTIN [Suspect]
     Dosage: UNK
     Route: 048
     Dates: start: 20121012, end: 20121018
  2. CARBAMAZEPINE [Suspect]
     Dosage: UNK
     Route: 048
     Dates: start: 20121016, end: 20121017
  3. KETOPROFEN [Suspect]
     Dosage: UNK
     Route: 048
     Dates: start: 20121012, end: 20121018

REACTIONS (1)
  - Toxic epidermal necrolysis [Recovered/Resolved]
